FAERS Safety Report 7268043-0 (Version None)
Quarter: 2011Q1

REPORT INFORMATION
  Report Type: 
  Country: None (occurrence: None)
  Receive Date: 20110201
  Receipt Date: 20110125
  Transmission Date: 20110831
  Serious: Yes (Hospitalization)
  Sender: FDA-Public Use
  Company Number: US-B.I. PHARMACEUTICALS,INC./RIDGEFIELD-2011-BP-01562BP

PATIENT
  Sex: Female

DRUGS (5)
  1. OMEPRAZOLE [Concomitant]
  2. FOSAMAX GENERIC [Concomitant]
     Indication: PROPHYLAXIS
  3. PRADAXA [Suspect]
     Indication: ATRIAL FIBRILLATION
     Dosage: 300 MG
     Route: 048
     Dates: start: 20101117, end: 20110108
  4. MULTAQ [Concomitant]
     Indication: ATRIAL FIBRILLATION
  5. DIOVAN [Concomitant]
     Indication: HYPERTENSION

REACTIONS (2)
  - BLOOD COUNT ABNORMAL [None]
  - ANTICOAGULANT THERAPY [None]
